FAERS Safety Report 19184574 (Version 1)
Quarter: 2021Q2

REPORT INFORMATION
  Report Type: Spontaneous
  Country: GB (occurrence: GB)
  Receive Date: 20210427
  Receipt Date: 20210427
  Transmission Date: 20210717
  Serious: Yes (Other)
  Sender: FDA-Public Use
  Company Number: GB-TOLMAR, INC.-21GB026720

PATIENT

DRUGS (1)
  1. LEVETIRACETAM. [Suspect]
     Active Substance: LEVETIRACETAM
     Indication: MATERNAL EXPOSURE TIMING UNSPECIFIED
     Dosage: 500 MG, BID
     Route: 064

REACTIONS (1)
  - Low birth weight baby [Unknown]
